FAERS Safety Report 14068186 (Version 1)
Quarter: 2017Q4

REPORT INFORMATION
  Report Type: Spontaneous
  Country: US (occurrence: None)
  Receive Date: 20171010
  Receipt Date: 20171010
  Transmission Date: 20180321
  Serious: No
  Sender: FDA-Public Use
  Company Number: None

PATIENT

DRUGS (2)
  1. HALDOL [Suspect]
     Active Substance: HALOPERIDOL
  2. RISPERDAL [Suspect]
     Active Substance: RISPERIDONE

REACTIONS (5)
  - Hallucination [None]
  - Product quality issue [None]
  - Tremor [None]
  - Urinary tract infection [None]
  - Peroneal nerve palsy [None]
